FAERS Safety Report 16734858 (Version 3)
Quarter: 2019Q3

REPORT INFORMATION
  Report Type: Report from Study
  Country: US (occurrence: US)
  Receive Date: 20190823
  Receipt Date: 20190925
  Transmission Date: 20191005
  Serious: Yes (Death, Life-Threatening, Hospitalization)
  Sender: FDA-Public Use
  Company Number: US-EISAI MEDICAL RESEARCH-EC-2019-060968

PATIENT
  Age: 75 Year
  Sex: Male
  Weight: 91.4 kg

DRUGS (14)
  1. ZOFRAN [Concomitant]
     Active Substance: ONDANSETRON HYDROCHLORIDE
  2. LIPITOR [Concomitant]
     Active Substance: ATORVASTATIN CALCIUM
  3. VALTREX [Concomitant]
     Active Substance: VALACYCLOVIR HYDROCHLORIDE
  4. LISINOPRIL. [Concomitant]
     Active Substance: LISINOPRIL
  5. LIDOCAINE-PRILOCAINE [Concomitant]
     Active Substance: LIDOCAINE\PRILOCAINE
  6. LASIX [Concomitant]
     Active Substance: FUROSEMIDE
  7. TOPROL XL [Concomitant]
     Active Substance: METOPROLOL SUCCINATE
  8. PEMBROLIZUMAB. [Suspect]
     Active Substance: PEMBROLIZUMAB
     Indication: LIPOSARCOMA
     Route: 041
     Dates: start: 20190606, end: 20190830
  9. ELIQUIS [Concomitant]
     Active Substance: APIXABAN
  10. PERICOLACE [Concomitant]
  11. ERIBULIN [Suspect]
     Active Substance: ERIBULIN
     Indication: LIPOSARCOMA
     Route: 041
     Dates: start: 20190606, end: 20190830
  12. COMPAZINE [Concomitant]
     Active Substance: PROCHLORPERAZINE MALEATE
  13. ASPIRIN. [Concomitant]
     Active Substance: ASPIRIN
  14. TIKOSYN [Concomitant]
     Active Substance: DOFETILIDE

REACTIONS (3)
  - Pyrexia [Unknown]
  - Hypotension [Unknown]
  - Cardiac arrest [Fatal]

NARRATIVE: CASE EVENT DATE: 20190819
